FAERS Safety Report 8841097 (Version 2)
Quarter: 2015Q3

REPORT INFORMATION
  Report Type: Spontaneous
  Country: US (occurrence: US)
  Receive Date: 20121015
  Receipt Date: 20150831
  Transmission Date: 20151125
  Serious: Yes (Congenital Anomaly, Other)
  Sender: FDA-Public Use
  Company Number: US-ELI_LILLY_AND_COMPANY-US201210002662

PATIENT
  Sex: Female

DRUGS (7)
  1. PROZAC [Suspect]
     Active Substance: FLUOXETINE HYDROCHLORIDE
     Dosage: 20 MG, QD
     Route: 064
  2. PROZAC [Suspect]
     Active Substance: FLUOXETINE HYDROCHLORIDE
     Indication: DEPRESSION
     Dosage: 1 DF, UNKNOWN
     Route: 064
  3. PROPYLTHIOURACIL APOTEX [Concomitant]
     Route: 064
  4. PROZAC [Suspect]
     Active Substance: FLUOXETINE HYDROCHLORIDE
     Dosage: 40 MG, QD
     Route: 063
  5. PRENATABS RX [Concomitant]
     Active Substance: VITAMINS
     Route: 064
  6. KEFLEX [Concomitant]
     Active Substance: CEPHALEXIN
     Route: 064
  7. OXYTOCIN. [Concomitant]
     Active Substance: OXYTOCIN
     Route: 064

REACTIONS (5)
  - Pulmonary valve stenosis [Unknown]
  - Ventricular septal defect [Unknown]
  - Foetal exposure during pregnancy [Recovered/Resolved]
  - Exposure during breast feeding [Unknown]
  - Atrial septal defect [Unknown]
